FAERS Safety Report 7776675-6 (Version None)
Quarter: 2011Q3

REPORT INFORMATION
  Report Type: 
  Country: None (occurrence: None)
  Receive Date: 20110926
  Receipt Date: 20090930
  Transmission Date: 20111222
  Serious: Yes (Death, Other)
  Sender: FDA-Public Use
  Company Number: US-BAYER-200934874NA

PATIENT
  Age: 80 Year
  Sex: Female
  Weight: 75 kg

DRUGS (20)
  1. TRASYLOL [Suspect]
     Indication: CORONARY REVASCULARISATION
     Dosage: 1 ML, ONCE TEST DOSE
     Route: 042
     Dates: start: 20060618, end: 20060618
  2. TRASYLOL [Suspect]
     Dosage: 25 ML/HR INFUSION
     Route: 042
     Dates: start: 20060618, end: 20060618
  3. FENTANYL [Concomitant]
     Dosage: UNK
     Dates: start: 20060618
  4. PROTAMINE [Concomitant]
     Dosage: 400 MG, UNK
     Route: 042
     Dates: start: 20060618
  5. HEPARIN [Concomitant]
     Dosage: UNK
     Route: 042
     Dates: start: 20060618
  6. CONTRAST MEDIA [Concomitant]
     Indication: CATHETERISATION CARDIAC
     Dosage: UNK
     Dates: start: 20060616
  7. TRASYLOL [Suspect]
     Dosage: 100 ML, ONCE CARDIOPULMONARY BYPASS PRIME
     Route: 042
     Dates: start: 20060618, end: 20060618
  8. ADVIL LIQUI-GELS [Concomitant]
     Dosage: AS NEEDED FOR PAIN LONG TERM USE
  9. CEFAZOLIN [Concomitant]
     Dosage: 1 G POST-OP
     Route: 042
     Dates: start: 20060618
  10. RED BLOOD CELLS [Concomitant]
     Dosage: 4 U, UNK
     Dates: start: 20060618
  11. TRASYLOL [Suspect]
     Dosage: 100 ML, ONCE LOADING DOSE
     Route: 042
     Dates: start: 20060618, end: 20060618
  12. CEFAZOLIN [Concomitant]
     Dosage: 2 G PRE-OP
     Route: 042
     Dates: start: 20060618
  13. MIDAZOLAM HCL [Concomitant]
     Dosage: UNK
     Dates: start: 20060618
  14. SOLU-MEDROL [Concomitant]
     Dosage: UNK
     Route: 042
     Dates: start: 20060618
  15. PLATELETS [Concomitant]
     Dosage: 1 U, UNK
     Dates: start: 20060618
  16. LIPITOR [Concomitant]
     Dosage: 40 MG, HS LONG TERM USE
     Route: 048
  17. DARVOCET [Concomitant]
     Dosage: AS NEEDED FOR PAIN LONG TERM USE
     Route: 048
  18. PROPOFOL [Concomitant]
     Dosage: 160 MG, UNK
     Route: 042
     Dates: start: 20060618
  19. VERSED [Concomitant]
     Dosage: 3 MG TOTAL
     Route: 042
     Dates: start: 20060618
  20. ATENOLOL W/HYDROCHLOROTHIAZIDE [Concomitant]
     Dosage: 25/50MG DAILY LONG TERM USE
     Route: 048

REACTIONS (12)
  - DEATH [None]
  - PAIN [None]
  - MULTI-ORGAN FAILURE [None]
  - RENAL INJURY [None]
  - STRESS [None]
  - RENAL FAILURE [None]
  - RENAL IMPAIRMENT [None]
  - EMOTIONAL DISTRESS [None]
  - FEAR [None]
  - INJURY [None]
  - ANXIETY [None]
  - UNEVALUABLE EVENT [None]
